FAERS Safety Report 25025034 (Version 3)
Quarter: 2025Q2

REPORT INFORMATION
  Report Type: Report from Study
  Country: US (occurrence: US)
  Receive Date: 20250228
  Receipt Date: 20250526
  Transmission Date: 20250716
  Serious: Yes (Other)
  Sender: UCB
  Company Number: US-UCBSA-2024067443

PATIENT
  Sex: Male

DRUGS (3)
  1. BIMEKIZUMAB [Suspect]
     Active Substance: BIMEKIZUMAB
     Indication: Hidradenitis
     Dosage: 320 MILLIGRAM, EV 2 WEEKS(QOW)
     Dates: start: 20241017
  2. BIMEKIZUMAB [Suspect]
     Active Substance: BIMEKIZUMAB
     Dosage: 320 MILLIGRAM, EV 4 WEEKS
  3. BIMEKIZUMAB [Suspect]
     Active Substance: BIMEKIZUMAB

REACTIONS (18)
  - Hidradenitis [Recovered/Resolved]
  - Laryngitis [Not Recovered/Not Resolved]
  - Tonsillar hypertrophy [Not Recovered/Not Resolved]
  - Snoring [Not Recovered/Not Resolved]
  - Sinus disorder [Not Recovered/Not Resolved]
  - Dry mouth [Not Recovered/Not Resolved]
  - Tonsillitis [Not Recovered/Not Resolved]
  - Injection site pain [Unknown]
  - Nodule [Recovering/Resolving]
  - Abscess drainage [Recovering/Resolving]
  - Abscess [Recovering/Resolving]
  - Positive airway pressure therapy [Not Recovered/Not Resolved]
  - Influenza [Not Recovered/Not Resolved]
  - Anal fissure [Not Recovered/Not Resolved]
  - Surgery [Not Recovered/Not Resolved]
  - Product availability issue [Unknown]
  - Insurance issue [Unknown]
  - Inappropriate schedule of product administration [Unknown]

NARRATIVE: CASE EVENT DATE: 20240101
